FAERS Safety Report 4429860-5 (Version None)
Quarter: 2004Q3

REPORT INFORMATION
  Report Type: 
  Country: None (occurrence: None)
  Receive Date: 20040820
  Receipt Date: 20040812
  Transmission Date: 20050211
  Serious: Yes (Death, Hospitalization)
  Sender: FDA-Public Use
  Company Number: US-JNJFOC-20040804416

PATIENT
  Age: 82 Year
  Sex: Male

DRUGS (1)
  1. DURAGESIC [Suspect]
     Route: 062
     Dates: start: 20040401, end: 20040802

REACTIONS (3)
  - CARDIAC FAILURE [None]
  - FALL [None]
  - FEMUR FRACTURE [None]
